FAERS Safety Report 12111777 (Version 2)
Quarter: 2016Q1

REPORT INFORMATION
  Report Type: Spontaneous
  Country: PH (occurrence: PH)
  Receive Date: 20160224
  Receipt Date: 20160302
  Transmission Date: 20160526
  Serious: Yes (Hospitalization)
  Sender: FDA-Public Use
  Company Number: PH-ABBVIE-16P-128-1567099-00

PATIENT
  Age: 32 Year
  Sex: Female

DRUGS (1)
  1. LUPROLEX [Suspect]
     Active Substance: LEUPROLIDE ACETATE
     Indication: ENDOMETRIOSIS
     Dosage: 3.75 MG, MONTHLY
     Route: 050
     Dates: start: 20160205

REACTIONS (1)
  - Cyst rupture [Recovered/Resolved]

NARRATIVE: CASE EVENT DATE: 20160210
